FAERS Safety Report 7399750-7 (Version None)
Quarter: 2011Q2

REPORT INFORMATION
  Report Type: 
  Country: None (occurrence: None)
  Receive Date: 20110407
  Receipt Date: 20110401
  Transmission Date: 20111010
  Serious: Yes (Disabling, Other)
  Sender: FDA-Public Use
  Company Number: PT-ROCHE-768986

PATIENT
  Age: 63 Year
  Sex: Female
  Weight: 78 kg

DRUGS (5)
  1. XELODA [Suspect]
     Dosage: 3 TABLETS IN THE MORNING PLUS 3 TABLETS IN THE EVENING. DOSE REDUCED
     Route: 048
     Dates: start: 20100926
  2. ZOMETA [Concomitant]
     Route: 042
     Dates: start: 20060101
  3. PAROXETINE HCL [Concomitant]
     Dosage: HALF TABLET IN THE MORNING
     Route: 048
     Dates: start: 20070101
  4. CAL D [Concomitant]
     Dosage: FOR A LONG TIME
     Route: 048
  5. XELODA [Suspect]
     Indication: BREAST CANCER METASTATIC
     Route: 048
     Dates: start: 20100825

REACTIONS (4)
  - PALMAR-PLANTAR ERYTHRODYSAESTHESIA SYNDROME [None]
  - MUSCULOSKELETAL PAIN [None]
  - VISUAL ACUITY REDUCED [None]
  - MALAISE [None]
